FAERS Safety Report 14937957 (Version 3)
Quarter: 2018Q4

REPORT INFORMATION
  Report Type: Spontaneous
  Country: GB (occurrence: GB)
  Receive Date: 20180525
  Receipt Date: 20181002
  Transmission Date: 20190204
  Serious: Yes (Other)
  Sender: FDA-Public Use
  Company Number: GB-009507513-1805GBR009199

PATIENT
  Age: 6 Year
  Sex: Male
  Weight: 25 kg

DRUGS (2)
  1. MONTELUKAST SODIUM. [Suspect]
     Active Substance: MONTELUKAST SODIUM
     Indication: ASTHMA
     Dosage: 5MG, UNK
     Route: 048
     Dates: start: 201710, end: 20180405
  2. CLENIL MODULITE [Concomitant]
     Active Substance: BECLOMETHASONE DIPROPIONATE

REACTIONS (1)
  - Dysphemia [Recovering/Resolving]

NARRATIVE: CASE EVENT DATE: 201712
